FAERS Safety Report 13040836 (Version 1)
Quarter: 2016Q4

REPORT INFORMATION
  Report Type: Spontaneous
  Country: US (occurrence: US)
  Receive Date: 20161219
  Receipt Date: 20161219
  Transmission Date: 20170207
  Serious: No
  Sender: FDA-Public Use
  Company Number: US-PFIZER INC-2016573855

PATIENT
  Age: 65 Year
  Sex: Female

DRUGS (1)
  1. IBRANCE [Suspect]
     Active Substance: PALBOCICLIB
     Indication: NEOPLASM MALIGNANT
     Dosage: 125 MG, CYCLIC (TAKE 1 CAPSULE DAILY FOR 21 DAYS THEN 7 DAYS OFF EVERY 28 DAY CYCLE)
     Dates: start: 201609

REACTIONS (4)
  - Asthma [Unknown]
  - Neoplasm progression [Unknown]
  - Cough [Unknown]
  - Dyspnoea [Unknown]
